FAERS Safety Report 14973684 (Version 1)
Quarter: 2018Q2

REPORT INFORMATION
  Report Type: Spontaneous
  Country: PK (occurrence: PK)
  Receive Date: 20180605
  Receipt Date: 20180605
  Transmission Date: 20180711
  Serious: Yes (Other)
  Sender: FDA-Public Use
  Company Number: PK-SA-2018SA144606

PATIENT
  Age: 45 Year
  Sex: Male

DRUGS (1)
  1. AMARYL [Suspect]
     Active Substance: GLIMEPIRIDE
     Indication: HYPERGLYCAEMIA
     Dosage: 1 MG, BID
     Route: 048
     Dates: start: 2017

REACTIONS (5)
  - Dry mouth [Unknown]
  - Neuropathy peripheral [Unknown]
  - Hyperglycaemia [Not Recovered/Not Resolved]
  - Drug ineffective [Unknown]
  - Pollakiuria [Unknown]

NARRATIVE: CASE EVENT DATE: 2017
